FAERS Safety Report 16993767 (Version 4)
Quarter: 2023Q1

REPORT INFORMATION
  Report Type: Spontaneous
  Country: US (occurrence: US)
  Receive Date: 20191105
  Receipt Date: 20230203
  Transmission Date: 20230418
  Serious: Yes (Other)
  Sender: FDA-Public Use
  Company Number: US-PFIZER INC-2019472753

PATIENT
  Age: 65 Year
  Sex: Male

DRUGS (1)
  1. XELJANZ XR [Suspect]
     Active Substance: TOFACITINIB CITRATE
     Dosage: 11 MG, DAILY (TAKE 1 TABLET BY MOUTH EVERY DAY)
     Route: 048

REACTIONS (3)
  - Drug dependence [Unknown]
  - Confusional state [Unknown]
  - Frustration tolerance decreased [Unknown]
